FAERS Safety Report 14509791 (Version 4)
Quarter: 2019Q2

REPORT INFORMATION
  Report Type: Spontaneous
  Country: US (occurrence: US)
  Receive Date: 20180209
  Receipt Date: 20190423
  Transmission Date: 20190711
  Serious: Yes (Hospitalization, Other)
  Sender: FDA-Public Use
  Company Number: US-PFIZER INC-2018054722

PATIENT
  Age: 46 Year
  Sex: Male
  Weight: 70.31 kg

DRUGS (4)
  1. PREZCOBIX [Concomitant]
     Active Substance: COBICISTAT\DARUNAVIR ETHANOLATE
     Indication: HIV INFECTION
     Dosage: UNK
  2. LYRICA [Suspect]
     Active Substance: PREGABALIN
     Dosage: 150 MG, AS NEEDED (ONCE DAILY)
     Route: 048
     Dates: start: 2016
  3. LYRICA [Suspect]
     Active Substance: PREGABALIN
     Indication: NEUROPATHY PERIPHERAL
     Dosage: 225 MG, 2X/DAY
     Route: 048
     Dates: start: 2016
  4. TRIUMEQ [Concomitant]
     Active Substance: ABACAVIR SULFATE\DOLUTEGRAVIR SODIUM\LAMIVUDINE
     Indication: HIV INFECTION
     Dosage: UNK

REACTIONS (7)
  - Back injury [Unknown]
  - Drug dependence [Unknown]
  - Drug ineffective [Not Recovered/Not Resolved]
  - Lung disorder [Unknown]
  - Intentional product use issue [Unknown]
  - Encephalitis [Unknown]
  - Product use issue [Unknown]

NARRATIVE: CASE EVENT DATE: 2016
